FAERS Safety Report 5412134-3 (Version None)
Quarter: 2007Q3

REPORT INFORMATION
  Report Type: 
  Country: None (occurrence: None)
  Receive Date: 20070713
  Receipt Date: 20070330
  Transmission Date: 20080115
  Serious: No
  Sender: FDA-Public Use
  Company Number: 2007SP001165

PATIENT
  Age: 69 Year
  Sex: Female

DRUGS (1)
  1. LUNESTA [Suspect]
     Dosage: PRN; ORAL
     Route: 048
     Dates: start: 20060101

REACTIONS (1)
  - DYSGEUSIA [None]
